FAERS Safety Report 9364818 (Version 1)
Quarter: 2013Q2

REPORT INFORMATION
  Report Type: Spontaneous
  Country: US (occurrence: US)
  Receive Date: 20130624
  Receipt Date: 20130624
  Transmission Date: 20140414
  Serious: Yes (Other)
  Sender: FDA-Public Use
  Company Number: US-PFIZER INC-2013184670

PATIENT
  Sex: Female

DRUGS (1)
  1. FIBERCON [Suspect]
     Dosage: 2 TABLETS, UNK
     Route: 048
     Dates: start: 20130618

REACTIONS (6)
  - Chest discomfort [Unknown]
  - Swelling [Unknown]
  - Pulse abnormal [Unknown]
  - Dry mouth [Unknown]
  - Hypoaesthesia oral [Unknown]
  - Tongue coated [Unknown]
